FAERS Safety Report 9605996 (Version 1)
Quarter: 2013Q4

REPORT INFORMATION
  Report Type: Spontaneous
  Country: US (occurrence: US)
  Receive Date: 20131008
  Receipt Date: 20131008
  Transmission Date: 20140711
  Serious: Yes (Life-Threatening, Hospitalization)
  Sender: FDA-Public Use
  Company Number: US-B.I. PHARMACEUTICALS,INC./RIDGEFIELD-2013-BI-31652BP

PATIENT
  Age: 67 Year
  Sex: Male
  Weight: 121 kg

DRUGS (9)
  1. PRADAXA [Suspect]
     Indication: CEREBROVASCULAR ACCIDENT PROPHYLAXIS
     Dosage: 300 MG
     Route: 048
     Dates: start: 20131004
  2. PRADAXA [Suspect]
     Indication: ATRIAL FIBRILLATION
  3. MAGNESIUM OXIDE [Concomitant]
     Dosage: 400 MG
     Route: 048
  4. CARVEDILOL [Concomitant]
     Dosage: 12.5 MG
     Route: 048
  5. FUROSEMIDE [Concomitant]
     Dosage: 80 MG
     Route: 048
  6. GEMFIBROZIL [Concomitant]
     Indication: BLOOD CHOLESTEROL INCREASED
     Dosage: 600 MG
     Route: 048
  7. SPIRONOLACTONE [Concomitant]
     Dosage: 50 MG
     Route: 048
  8. LISINOPRIL [Concomitant]
     Dosage: 5 MG
     Route: 048
  9. ATORVASTATIN [Concomitant]
     Indication: BLOOD CHOLESTEROL INCREASED
     Dosage: 40 MG
     Route: 048

REACTIONS (1)
  - Cerebrovascular accident [Unknown]
